FAERS Safety Report 7950125-9 (Version None)
Quarter: 2011Q4

REPORT INFORMATION
  Report Type: 
  Country: None (occurrence: None)
  Receive Date: 20111130
  Receipt Date: 20111123
  Transmission Date: 20120403
  Serious: Yes (Disabling, Other)
  Sender: FDA-Public Use
  Company Number: MX-SANOFI-AVENTIS-2011SA077283

PATIENT
  Age: 67 Year
  Sex: Male
  Weight: 110 kg

DRUGS (4)
  1. LANTUS [Suspect]
     Indication: TYPE 2 DIABETES MELLITUS
     Route: 058
     Dates: start: 20090101
  2. DICLOFENAC SODIUM [Concomitant]
     Dates: start: 19600101
  3. GLIMEPIRIDE/METFORMIN [Concomitant]
     Indication: TYPE 2 DIABETES MELLITUS
     Dates: start: 19910101
  4. DICLOFENAC SODIUM AND CYANOCOBALAMIN AND THIAMINE MONONITRATE AND PYRI [Concomitant]
     Dates: start: 19600101

REACTIONS (1)
  - BLINDNESS [None]
